FAERS Safety Report 19838123 (Version 1)
Quarter: 2021Q3

REPORT INFORMATION
  Report Type: Spontaneous
  Country: DE (occurrence: DE)
  Receive Date: 20210916
  Receipt Date: 20210916
  Transmission Date: 20211014
  Serious: Yes (Hospitalization)
  Sender: FDA-Public Use
  Company Number: DE-TEVA-2021-DE-1951528

PATIENT
  Age: 63 Year
  Sex: Male
  Weight: 95 kg

DRUGS (11)
  1. CALCITRIOL. [Concomitant]
     Active Substance: CALCITRIOL
     Dosage: 2 DOSAGE FORMS DAILY; 0.25 MCG, 2?0?0?0,
     Route: 048
  2. LOPERAMID [Concomitant]
     Active Substance: LOPERAMIDE
     Dosage: 6 DOSAGE FORMS DAILY; 2 MG, 2?2?2?0
     Route: 048
  3. ACETYLSALICYLSAURE [Concomitant]
     Active Substance: ASPIRIN
     Dosage: 100 MILLIGRAM DAILY;  1?0?0?0
     Route: 048
  4. GEMCITABINE. [Suspect]
     Active Substance: GEMCITABINE
     Dosage: 2472 MG, ACCORDING TO THE SCHEME,
     Route: 042
  5. PANTOPRAZOL [Concomitant]
     Active Substance: PANTOPRAZOLE SODIUM
     Dosage: 40 MILLIGRAM DAILY;  1?0?0?0
     Route: 048
  6. CARBOPLATIN. [Suspect]
     Active Substance: CARBOPLATIN
     Dosage: 311.1 MG, ACCORDING TO THE SCHEME,
     Route: 042
  7. SEMAGLUTID [Concomitant]
     Dosage: 2 MG, ACCORDING TO THE SCHEME, PRE?FILLED SYRINGES
     Route: 058
  8. ISPAGHULA (FLOHSAMEN) [Concomitant]
     Dosage: 6.5 GRAM DAILY;   1?0?1?0, GSE
     Route: 048
  9. PREGABALIN. [Concomitant]
     Active Substance: PREGABALIN
     Dosage: 150 MILLIGRAM DAILY; 0?0?1?0
     Route: 048
  10. TORASEMID [Concomitant]
     Active Substance: TORSEMIDE
     Dosage: 2 DOSAGE FORMS DAILY; 10 MG, 2?0?0?0,
     Route: 048
  11. DALTEPARIN [Concomitant]
     Active Substance: DALTEPARIN
     Dosage: 5000 IU (INTERNATIONAL UNIT) DAILY; 5000 IU, 0?0?1?0, PRE?FILLED SYRINGES
     Route: 058

REACTIONS (3)
  - Chills [Unknown]
  - Pyrexia [Unknown]
  - Pain [Unknown]
